FAERS Safety Report 5830945-7 (Version None)
Quarter: 2008Q3

REPORT INFORMATION
  Report Type: 
  Country: None (occurrence: None)
  Receive Date: 20080801
  Receipt Date: 20080219
  Transmission Date: 20090109
  Serious: Yes (Other)
  Sender: FDA-Public Use
  Company Number: US-BRISTOL-MYERS SQUIBB COMPANY-14081038

PATIENT
  Age: 67 Year
  Sex: Male

DRUGS (5)
  1. WARFARIN SODIUM [Suspect]
     Indication: ATRIAL FIBRILLATION
     Dosage: 01SEP05-02SEP05=7.5MG, 03SEP05-09SEP05=5MG, 10SEP05-11SEP05=7.5MG, 12SEP05-17SEP05=5MG.
     Route: 048
     Dates: start: 20050901, end: 20050917
  2. PLAVIX [Suspect]
     Indication: STENT PLACEMENT
     Route: 048
     Dates: start: 20050401
  3. LOVENOX [Suspect]
     Indication: ATRIAL FIBRILLATION
     Route: 058
     Dates: start: 20050917, end: 20050917
  4. LOVENOX [Suspect]
     Indication: ANTICOAGULANT THERAPY
     Route: 058
     Dates: start: 20050917, end: 20050917
  5. ASPIRIN [Suspect]
     Indication: STENT PLACEMENT
     Route: 048
     Dates: start: 20050401

REACTIONS (1)
  - CEREBRAL HAEMORRHAGE [None]
